FAERS Safety Report 17810429 (Version 2)
Quarter: 2020Q4

REPORT INFORMATION
  Report Type: Spontaneous
  Country: GB (occurrence: GB)
  Receive Date: 20200521
  Receipt Date: 20201021
  Transmission Date: 20210113
  Serious: Yes (Other)
  Sender: FDA-Public Use
  Company Number: GB-009507513-2005GBR003122

PATIENT
  Age: 43 Year
  Sex: Female
  Weight: 76.65 kg

DRUGS (3)
  1. MIRTAZAPINE. [Suspect]
     Active Substance: MIRTAZAPINE
     Indication: ANXIETY
     Dosage: 15 MILLIGRAM
     Route: 048
     Dates: start: 20200417, end: 20200418
  2. SUMATRIPTAN. [Concomitant]
     Active Substance: SUMATRIPTAN
  3. FEVERFEW [Concomitant]
     Active Substance: FEVERFEW

REACTIONS (8)
  - Myalgia [Recovered/Resolved]
  - Nightmare [Unknown]
  - Dry mouth [Recovered/Resolved]
  - Mouth ulceration [Recovered/Resolved]
  - Dry throat [Recovered/Resolved]
  - Pyrexia [Recovered/Resolved]
  - Somnolence [Unknown]
  - Oropharyngeal pain [Recovered/Resolved]

NARRATIVE: CASE EVENT DATE: 20200417
